FAERS Safety Report 10596935 (Version 6)
Quarter: 2024Q3

REPORT INFORMATION
  Report Type: Report from Study
  Country: US (occurrence: US)
  Receive Date: 20141120
  Receipt Date: 20240726
  Transmission Date: 20241017
  Serious: Yes (Hospitalization, Other)
  Sender: TAKEDA
  Company Number: US-ARIAD-2014US003136

PATIENT
  Age: 40 Year
  Sex: Female

DRUGS (3)
  1. PONATINIB [Suspect]
     Active Substance: PONATINIB
     Indication: Chronic myeloid leukaemia
     Dosage: 45 MILLIGRAM, QD
     Route: 048
     Dates: start: 20140128
  2. PONATINIB [Suspect]
     Active Substance: PONATINIB
     Indication: Chronic myeloid leukaemia
     Dosage: UNK
     Route: 048
  3. PONATINIB [Suspect]
     Active Substance: PONATINIB
     Dosage: 45 MILLIGRAM, QD
     Route: 048

REACTIONS (14)
  - Platelet count increased [Unknown]
  - Abortion spontaneous [Unknown]
  - Platelet disorder [Unknown]
  - Cerebrovascular accident [Unknown]
  - Neuropathy peripheral [Unknown]
  - Headache [Unknown]
  - Muscle spasms [Unknown]
  - Bone pain [Unknown]
  - White blood cell count decreased [Unknown]
  - Fatigue [Unknown]
  - Dyspnoea [Unknown]
  - Pyrexia [Unknown]
  - Arthralgia [Unknown]
  - Pregnancy [Unknown]

NARRATIVE: CASE EVENT DATE: 20240620
